FAERS Safety Report 4301005-1 (Version None)
Quarter: 2004Q1

REPORT INFORMATION
  Report Type: 
  Country: None (occurrence: None)
  Receive Date: 20040218
  Receipt Date: 20031203
  Transmission Date: 20041129
  Serious: No
  Sender: FDA-Public Use
  Company Number: 2003-12-0273

PATIENT
  Sex: Female

DRUGS (3)
  1. PEG-INTRON [Suspect]
     Indication: HEPATITIS C
     Dosage: 300-150MCGQW* SUBCUTANEOUS
     Route: 058
  2. PEG-INTRON [Suspect]
     Indication: HEPATITIS C
     Dosage: 300-150MCGQW* SUBCUTANEOUS
     Route: 058
     Dates: start: 20030228
  3. PEG-INTRON [Suspect]
     Indication: HEPATITIS C
     Dosage: 300-150MCGQW* SUBCUTANEOUS
     Route: 058
     Dates: start: 20030228

REACTIONS (2)
  - ANGER [None]
  - MALAISE [None]
